FAERS Safety Report 4663263-3 (Version None)
Quarter: 2005Q2

REPORT INFORMATION
  Report Type: 
  Country: None (occurrence: None)
  Receive Date: 20050513
  Receipt Date: 20050504
  Transmission Date: 20051028
  Serious: Yes (Other)
  Sender: FDA-Public Use
  Company Number: 2005-04-1799

PATIENT
  Age: 63 Year
  Sex: Female

DRUGS (1)
  1. NASONEX [Suspect]
     Dosage: 2 PUFFS QD NASAL SPRAY
     Route: 045
     Dates: start: 20050417, end: 20050420

REACTIONS (2)
  - AGEUSIA [None]
  - ANOSMIA [None]
